FAERS Safety Report 14481177 (Version 2)
Quarter: 2020Q3

REPORT INFORMATION
  Report Type: Report from Study
  Country: CN (occurrence: CN)
  Receive Date: 20180202
  Receipt Date: 20180827
  Transmission Date: 20201104
  Serious: Yes (Death, Life-Threatening, Hospitalization, Other)
  Sender: FDA-Public Use
  Company Number: CN-ASTRAZENECA-2017SE17213

PATIENT
  Age: 20325 Day
  Sex: Female

DRUGS (6)
  1. MEDI4736 [Suspect]
     Active Substance: DURVALUMAB
     Indication: MALIGNANT MELANOMA
     Route: 042
     Dates: start: 20170210, end: 20170210
  2. TREMELIMUMAB. [Suspect]
     Active Substance: TREMELIMUMAB
     Indication: MALIGNANT MELANOMA
     Route: 042
     Dates: start: 20161214, end: 20161214
  3. TREMELIMUMAB. [Suspect]
     Active Substance: TREMELIMUMAB
     Indication: MALIGNANT MELANOMA
     Route: 042
     Dates: start: 20170111, end: 20170111
  4. MEDI4736 [Suspect]
     Active Substance: DURVALUMAB
     Indication: MALIGNANT MELANOMA
     Route: 042
     Dates: start: 20170111, end: 20170111
  5. MEDI4736 [Suspect]
     Active Substance: DURVALUMAB
     Indication: MALIGNANT MELANOMA
     Route: 042
     Dates: start: 20161214, end: 20161214
  6. TREMELIMUMAB. [Suspect]
     Active Substance: TREMELIMUMAB
     Indication: MALIGNANT MELANOMA
     Route: 042
     Dates: start: 20170210, end: 20170210

REACTIONS (7)
  - Platelet count decreased [Recovered/Resolved]
  - Pneumonia [Fatal]
  - Drug-induced liver injury [Not Recovered/Not Resolved]
  - Ileus [Recovered/Resolved]
  - Blood glucose decreased [Recovered/Resolved]
  - Anaemia [Not Recovered/Not Resolved]
  - Blood bilirubin increased [Not Recovered/Not Resolved]

NARRATIVE: CASE EVENT DATE: 20170208
